FAERS Safety Report 4339463-9 (Version None)
Quarter: 2004Q2

REPORT INFORMATION
  Report Type: 
  Country: None (occurrence: None)
  Receive Date: 20040412
  Receipt Date: 20040331
  Transmission Date: 20050107
  Serious: Yes (Other)
  Sender: FDA-Public Use
  Company Number: 066-20785-04010532

PATIENT
  Age: 27 Year
  Sex: Male

DRUGS (1)
  1. THALOMIDE   (THALOMIDE) [Suspect]
     Indication: CUTANEOUS LUPUS ERYTHEMATOSUS
     Dosage: 100 MG, DAILY

REACTIONS (4)
  - ANTIPHOSPHOLIPID SYNDROME [None]
  - DEEP VEIN THROMBOSIS [None]
  - PLEURAL EFFUSION [None]
  - PULMONARY EMBOLISM [None]
